FAERS Safety Report 10399829 (Version 1)
Quarter: 2014Q3

REPORT INFORMATION
  Report Type: Spontaneous
  Country: US (occurrence: US)
  Receive Date: 20140821
  Receipt Date: 20140821
  Transmission Date: 20150326
  Serious: No
  Sender: FDA-Public Use
  Company Number: US-ENDO PHARMACEUTICALS INC.-OXAT20140010

PATIENT
  Sex: Female

DRUGS (1)
  1. OXYCODONE/ACETAMINOPHEN 5MG/325MG TABLETS [Suspect]
     Active Substance: ACETAMINOPHEN\OXYCODONE\OXYCODONE HYDROCHLORIDE
     Indication: PRODUCT USED FOR UNKNOWN INDICATION
     Dosage: 5/325 MG
     Route: 048
     Dates: start: 20140307

REACTIONS (2)
  - Drug ineffective [Not Recovered/Not Resolved]
  - Suspected counterfeit product [Not Recovered/Not Resolved]

NARRATIVE: CASE EVENT DATE: 20140312
